FAERS Safety Report 20865377 (Version 1)
Quarter: 2022Q2

REPORT INFORMATION
  Report Type: Spontaneous
  Country: US (occurrence: US)
  Receive Date: 20220524
  Receipt Date: 20220524
  Transmission Date: 20220721
  Serious: Yes (Death, Other)
  Sender: FDA-Public Use
  Company Number: US-BRISTOL-MYERS SQUIBB COMPANY-2022-037785

PATIENT
  Age: 2 Year
  Sex: Female

DRUGS (10)
  1. THALOMID [Suspect]
     Active Substance: THALIDOMIDE
     Indication: Medulloblastoma
     Route: 048
     Dates: start: 20220210, end: 20220419
  2. THALOMID [Suspect]
     Active Substance: THALIDOMIDE
     Indication: Magnetic resonance imaging head abnormal
  3. VANCOMYCIN [Concomitant]
     Active Substance: VANCOMYCIN
     Indication: Product used for unknown indication
  4. CEFEPIME [Concomitant]
     Active Substance: CEFEPIME HYDROCHLORIDE
     Indication: Product used for unknown indication
  5. MORPHINE [Concomitant]
     Active Substance: MORPHINE
     Indication: Product used for unknown indication
     Dosage: 1.05 MG/KG/HR
  6. PROPOFOL [Concomitant]
     Active Substance: PROPOFOL
     Indication: Product used for unknown indication
  7. precedex drip [Concomitant]
     Indication: Product used for unknown indication
  8. KEPPRA [Concomitant]
     Active Substance: LEVETIRACETAM
     Indication: Product used for unknown indication
     Dates: end: 20220411
  9. DEXMEDETOMIDINE [Concomitant]
     Active Substance: DEXMEDETOMIDINE
     Indication: Product used for unknown indication
     Dosage: 1.2 MCG/KG/HR
  10. VERSED [Concomitant]
     Active Substance: MIDAZOLAM HYDROCHLORIDE
     Indication: Product used for unknown indication
     Dosage: 1.05 MG/KG/HR

REACTIONS (10)
  - Seizure [Unknown]
  - Pyrexia [Unknown]
  - Agonal respiration [Unknown]
  - Brain herniation [Unknown]
  - Abdominal distension [Unknown]
  - Tachycardia [Recovered/Resolved]
  - Urinary retention [Unknown]
  - Cardiac arrest [Unknown]
  - Death [Fatal]
  - Off label use [Unknown]

NARRATIVE: CASE EVENT DATE: 20220402
